FAERS Safety Report 12538330 (Version 1)
Quarter: 2016Q3

REPORT INFORMATION
  Report Type: Report from Study
  Country: US (occurrence: US)
  Receive Date: 20160707
  Receipt Date: 20160707
  Transmission Date: 20161109
  Serious: Yes (Other)
  Sender: FDA-Public Use
  Company Number: US-ABBVIE-16P-163-1670881-00

PATIENT
  Age: 67 Year
  Sex: Male

DRUGS (3)
  1. RIBAVIRIN. [Suspect]
     Active Substance: RIBAVIRIN
     Indication: CHRONIC HEPATITIS C
     Route: 048
     Dates: start: 20151020, end: 20151211
  2. RIBAVIRIN. [Suspect]
     Active Substance: RIBAVIRIN
     Route: 048
     Dates: start: 20151212, end: 20160111
  3. VIEKIRA PAK [Suspect]
     Active Substance: DASABUVIR\OMBITASVIR\PARITAPREVIR\RITONAVIR
     Indication: CHRONIC HEPATITIS C
     Route: 048
     Dates: start: 20151020, end: 20160111

REACTIONS (9)
  - Feeling abnormal [Unknown]
  - Decreased appetite [Unknown]
  - Suicidal ideation [Unknown]
  - Pruritus [Unknown]
  - Arthralgia [Unknown]
  - Vertigo [Unknown]
  - Mood swings [Unknown]
  - Depression [Unknown]
  - Palpitations [Unknown]

NARRATIVE: CASE EVENT DATE: 20151106
